FAERS Safety Report 12140423 (Version 2)
Quarter: 2016Q4

REPORT INFORMATION
  Report Type: Spontaneous
  Country: US (occurrence: US)
  Receive Date: 20160303
  Receipt Date: 20161228
  Transmission Date: 20170207
  Serious: No
  Sender: FDA-Public Use
  Company Number: US-ELI_LILLY_AND_COMPANY-US201602001834

PATIENT
  Sex: Female
  Weight: 56.7 kg

DRUGS (1)
  1. HUMALOG [Suspect]
     Active Substance: INSULIN LISPRO
     Indication: TYPE 1 DIABETES MELLITUS
     Dosage: 27.55 U, QD
     Route: 058
     Dates: start: 2001

REACTIONS (2)
  - Exposure during pregnancy [Unknown]
  - Blood glucose fluctuation [Unknown]
